FAERS Safety Report 13703488 (Version 1)
Quarter: 2017Q2

REPORT INFORMATION
  Report Type: Spontaneous
  Country: PL (occurrence: PL)
  Receive Date: 20170629
  Receipt Date: 20170629
  Transmission Date: 20170830
  Serious: Yes (Other)
  Sender: FDA-Public Use
  Company Number: PL-GILEAD-2017-0280399

PATIENT
  Age: 34 Year
  Sex: Male
  Weight: 84 kg

DRUGS (11)
  1. HARVONI [Suspect]
     Active Substance: LEDIPASVIR\SOFOSBUVIR
     Indication: CHRONIC HEPATITIS C
     Route: 065
  2. ENTECAVIR. [Concomitant]
     Active Substance: ENTECAVIR
  3. RIFAXIMINA [Concomitant]
     Active Substance: RIFAXIMIN
  4. HYDROCHLOROTHIAZIDE. [Concomitant]
     Active Substance: HYDROCHLOROTHIAZIDE
  5. VITAMIN D                          /00107901/ [Concomitant]
     Active Substance: ERGOCALCIFEROL
  6. CALCIUM [Concomitant]
     Active Substance: CALCIUM
  7. SILDENAFIL. [Concomitant]
     Active Substance: SILDENAFIL
  8. MACITENTAN [Concomitant]
     Active Substance: MACITENTAN
  9. SPIRONOLACTON [Concomitant]
     Active Substance: SPIRONOLACTONE
  10. FUROSEMIDE. [Concomitant]
     Active Substance: FUROSEMIDE
  11. PROPRANOLOL [Concomitant]
     Active Substance: PROPRANOLOL HYDROCHLORIDE

REACTIONS (8)
  - Hepatic encephalopathy [Unknown]
  - Cough [Unknown]
  - Oropharyngeal pain [Unknown]
  - Pyrexia [Unknown]
  - Diarrhoea [Unknown]
  - Vomiting [Unknown]
  - Somnolence [Unknown]
  - Sleep disorder [Unknown]
